FAERS Safety Report 7531088-7 (Version None)
Quarter: 2011Q2

REPORT INFORMATION
  Report Type: 
  Country: None (occurrence: None)
  Receive Date: 20110526
  Receipt Date: 20110517
  Transmission Date: 20111010
  Serious: Yes (Other)
  Sender: FDA-Public Use
  Company Number: 2011SP023386

PATIENT

DRUGS (1)
  1. TEMOZOLOMIDE [Suspect]
     Indication: GLIOMA
     Dosage: ; PO
     Route: 048

REACTIONS (10)
  - NAUSEA [None]
  - PERIPHERAL MOTOR NEUROPATHY [None]
  - RASH [None]
  - VOMITING [None]
  - HAEMOGLOBIN ABNORMAL [None]
  - PLATELET DISORDER [None]
  - ASPARTATE AMINOTRANSFERASE ABNORMAL [None]
  - NEUTROPHIL COUNT ABNORMAL [None]
  - PERIPHERAL SENSORY NEUROPATHY [None]
  - WHITE BLOOD CELL DISORDER [None]
